FAERS Safety Report 4302320-8 (Version None)
Quarter: 2004Q1

REPORT INFORMATION
  Report Type: 
  Country: None (occurrence: None)
  Receive Date: 20040126
  Receipt Date: 20031003
  Transmission Date: 20041129
  Serious: No
  Sender: FDA-Public Use
  Company Number: USA031048988

PATIENT
  Age: 5 Year
  Sex: Male

DRUGS (3)
  1. STRATTERA [Suspect]
     Indication: ATTENTION DEFICIT/HYPERACTIVITY DISORDER
     Dosage: 25 MG/DAY
     Dates: start: 20030901, end: 20030927
  2. METHOTREXATE [Concomitant]
  3. DECADRON [Concomitant]

REACTIONS (1)
  - POLLAKIURIA [None]
